FAERS Safety Report 23105697 (Version 1)
Quarter: 2023Q4

REPORT INFORMATION
  Report Type: Spontaneous
  Country: US (occurrence: None)
  Receive Date: 20231023
  Receipt Date: 20231023
  Transmission Date: 20240110
  Serious: Yes (Life-Threatening, Hospitalization)
  Sender: FDA-Public Use
  Company Number: None

PATIENT
  Age: 83 Year
  Sex: Male
  Weight: 113 kg

DRUGS (1)
  1. WARFARIN SODIUM [Suspect]
     Active Substance: WARFARIN SODIUM
     Dates: start: 20030103, end: 20230405

REACTIONS (3)
  - Cerebrovascular accident [None]
  - International normalised ratio decreased [None]
  - Atrial fibrillation [None]

NARRATIVE: CASE EVENT DATE: 20230405
